FAERS Safety Report 24005458 (Version 3)
Quarter: 2024Q3

REPORT INFORMATION
  Report Type: Spontaneous
  Country: IN (occurrence: IN)
  Receive Date: 20240624
  Receipt Date: 20240903
  Transmission Date: 20241016
  Serious: Yes (Death, Hospitalization)
  Sender: PFIZER
  Company Number: IN-PFIZER INC-PV202400081360

PATIENT
  Age: 57 Year
  Sex: Male

DRUGS (1)
  1. CRIZOTINIB [Suspect]
     Active Substance: CRIZOTINIB
     Dosage: 250 MG, 2X/DAY (BD)
     Route: 048
     Dates: start: 20240323

REACTIONS (3)
  - Death [Fatal]
  - Dyspnoea [Unknown]
  - Gait disturbance [Recovering/Resolving]
